FAERS Safety Report 7940024-0 (Version None)
Quarter: 2011Q4

REPORT INFORMATION
  Report Type: 
  Country: None (occurrence: None)
  Receive Date: 20111125
  Receipt Date: 20111122
  Transmission Date: 20120403
  Serious: No
  Sender: FDA-Public Use
  Company Number: US-PFIZER INC-2011285782

PATIENT
  Sex: Female

DRUGS (3)
  1. SUTENT [Suspect]
     Indication: RENAL CANCER
     Dosage: 12.5 MG, TAKE 1 CAPSULE BY MOUTH ONCE DAILY FOR 4 WEEKS EVERY 6 WEEKS
     Route: 048
  2. ACETAMINOPHEN [Concomitant]
     Dosage: 500 MG, UNK
  3. ATENOLOL [Concomitant]
     Dosage: 25 MG, UNK

REACTIONS (2)
  - DISEASE PROGRESSION [None]
  - RENAL CANCER [None]
